FAERS Safety Report 9171539 (Version 3)
Quarter: 2013Q2

REPORT INFORMATION
  Report Type: Spontaneous
  Country: US (occurrence: US)
  Receive Date: 20130319
  Receipt Date: 20130501
  Transmission Date: 20140414
  Serious: Yes (Hospitalization)
  Sender: FDA-Public Use
  Company Number: US-GLAXOSMITHKLINE-A1015482A

PATIENT
  Age: 61 Year
  Sex: Female

DRUGS (16)
  1. LAMICTAL [Suspect]
     Indication: EPILEPSY
     Dosage: 200MG TWICE PER DAY
     Route: 048
     Dates: start: 2011
  2. LAMICTAL XR [Suspect]
     Indication: CONVULSION
     Dosage: 800MG PER DAY
     Route: 048
  3. VIMPAT [Concomitant]
  4. LYRICA [Concomitant]
  5. TOPAMAX [Concomitant]
  6. MELOXICAM [Concomitant]
  7. KLONOPIN [Concomitant]
  8. LEVOTHYROXINE [Concomitant]
  9. MAGNESIUM [Concomitant]
  10. POTASSIUM [Concomitant]
  11. VITAMIN D [Concomitant]
  12. VITAMIN [Concomitant]
  13. TYLENOL [Concomitant]
  14. NEXIUM [Concomitant]
  15. CALCIUM [Concomitant]
  16. UNKNOWN MEDICATION [Concomitant]

REACTIONS (11)
  - Convulsion [Recovering/Resolving]
  - Abasia [Recovering/Resolving]
  - Balance disorder [Recovering/Resolving]
  - Fall [Recovering/Resolving]
  - Mobility decreased [Recovering/Resolving]
  - Neck pain [Recovering/Resolving]
  - Nausea [Recovering/Resolving]
  - Dysarthria [Recovering/Resolving]
  - Headache [Recovering/Resolving]
  - Visual acuity reduced [Recovering/Resolving]
  - Slow speech [Recovering/Resolving]
